FAERS Safety Report 17913863 (Version 1)
Quarter: 2020Q2

REPORT INFORMATION
  Report Type: Spontaneous
  Country: CN (occurrence: CN)
  Receive Date: 20200618
  Receipt Date: 20200618
  Transmission Date: 20200714
  Serious: Yes (Other)
  Sender: FDA-Public Use
  Company Number: CN-VALIDUS PHARMACEUTICALS LLC-CN-2020VAL000501

PATIENT

DRUGS (2)
  1. CALCITRIOL. [Suspect]
     Active Substance: CALCITRIOL
     Indication: END STAGE RENAL DISEASE
  2. CALCITRIOL. [Suspect]
     Active Substance: CALCITRIOL
     Indication: HYPERPARATHYROIDISM SECONDARY
     Dosage: UNK, QD (CONTINUOUS TREATMENT FOR 6 MONTHS)
     Route: 048

REACTIONS (5)
  - Hyperphosphataemia [Unknown]
  - Off label use [Unknown]
  - Intentional product use issue [Unknown]
  - Blood calcium increased [Unknown]
  - Seizure [Unknown]
